FAERS Safety Report 13137835 (Version 1)
Quarter: 2017Q1

REPORT INFORMATION
  Report Type: Report from Study
  Country: US (occurrence: US)
  Receive Date: 20170123
  Receipt Date: 20170123
  Transmission Date: 20170428
  Serious: Yes (Hospitalization)
  Sender: FDA-Public Use
  Company Number: US-UNITED THERAPEUTICS-UNT-2015-012240

PATIENT
  Age: 67 Year
  Sex: Female
  Weight: 85.9 kg

DRUGS (20)
  1. TYVASO [Suspect]
     Active Substance: TREPROSTINIL
     Indication: PULMONARY ARTERIAL HYPERTENSION
     Dosage: 42 ?G, TOTAL DAILY DOSE
     Dates: start: 20150812
  2. MYCOSTATIN [Concomitant]
     Active Substance: NYSTATIN
     Indication: OESOPHAGEAL CANDIDIASIS
  3. LASIX [Concomitant]
     Active Substance: FUROSEMIDE
     Indication: CHRONIC LYMPHOCYTIC LEUKAEMIA
  4. TYVASO [Suspect]
     Active Substance: TREPROSTINIL
     Dosage: 18-54 ?G, QID
  5. TYVASO [Suspect]
     Active Substance: TREPROSTINIL
     Dosage: 24 ?G, QID
  6. DIFLUCAN [Concomitant]
     Active Substance: FLUCONAZOLE
     Indication: ORAL CANDIDIASIS
     Dosage: 100 MG, TAKE ONE TABLET DAILY FOR SIX DAYS
     Route: 048
  7. LASIX [Concomitant]
     Active Substance: FUROSEMIDE
     Indication: GASTROINTESTINAL HAEMORRHAGE
  8. CLARITIN [Concomitant]
     Active Substance: LORATADINE
     Indication: ROUTINE HEALTH MAINTENANCE
     Dosage: 10 MG, QD
     Route: 048
  9. SINGULAIR [Concomitant]
     Active Substance: MONTELUKAST SODIUM
     Indication: SINUS DISORDER
     Dosage: 10 MG, QD
     Route: 048
  10. MYCOSTATIN [Concomitant]
     Active Substance: NYSTATIN
     Indication: ORAL CANDIDIASIS
     Dosage: 100,000 UNITS/ML SWISH AND SPIT 5 ML BY MOUTH QID FOR 6 DAYS
  11. CARAFATE [Concomitant]
     Active Substance: SUCRALFATE
     Indication: GASTRITIS
     Dosage: 10 ML, QID DAILY BEFORE MEALS AND HIGHTLY
     Route: 048
  12. LASIX [Concomitant]
     Active Substance: FUROSEMIDE
     Indication: PULMONARY HYPERTENSION
     Dosage: 20 MG, QD
     Route: 048
  13. LASIX [Concomitant]
     Active Substance: FUROSEMIDE
     Indication: DIZZINESS
  14. TYVASO [Suspect]
     Active Substance: TREPROSTINIL
     Dosage: 54 ?G, TOTAL DAILY DOSE
  15. BLINDED PLACEBO [Suspect]
     Active Substance: INVESTIGATIONAL PRODUCT
     Indication: PULMONARY ARTERIAL HYPERTENSION
     Dosage: UNK
     Route: 048
     Dates: start: 20151119
  16. DIFLUCAN [Concomitant]
     Active Substance: FLUCONAZOLE
     Indication: OESOPHAGEAL CANDIDIASIS
  17. LASIX [Concomitant]
     Active Substance: FUROSEMIDE
     Indication: GASTROOESOPHAGEAL REFLUX DISEASE
  18. BLINDED BERAPROST SODIUM [Suspect]
     Active Substance: BERAPROST SODIUM
     Indication: PULMONARY ARTERIAL HYPERTENSION
     Dosage: UNK
     Route: 048
     Dates: start: 20151119
  19. PROTONIX [Concomitant]
     Active Substance: PANTOPRAZOLE SODIUM
     Indication: GASTROOESOPHAGEAL REFLUX DISEASE
     Dosage: 40 MG, TAKE ONE TABLET DAILY BEFORE BREAKFAST
     Route: 048
  20. OPSUMIT [Concomitant]
     Active Substance: MACITENTAN
     Indication: ROUTINE HEALTH MAINTENANCE
     Dosage: 10 MG, QD NIGHTLY
     Route: 048

REACTIONS (4)
  - Gastritis [Recovered/Resolved]
  - Oesophageal stenosis [Not Recovered/Not Resolved]
  - Oral candidiasis [Recovered/Resolved]
  - Oesophagitis [Not Recovered/Not Resolved]

NARRATIVE: CASE EVENT DATE: 20150926
